FAERS Safety Report 6907345-1 (Version None)
Quarter: 2010Q3

REPORT INFORMATION
  Report Type: 
  Country: None (occurrence: None)
  Receive Date: 20100802
  Receipt Date: 20100716
  Transmission Date: 20110219
  Serious: Yes (Death, Hospitalization, Other)
  Sender: FDA-Public Use
  Company Number: WAES 1007USA01911

PATIENT
  Sex: Female

DRUGS (4)
  1. ISENTRESS [Suspect]
     Indication: HIV INFECTION
     Dosage: UNK; PO
     Route: 048
     Dates: start: 20100513, end: 20100713
  2. LOPINAVIR AND RITONAVIR [Suspect]
     Indication: HIV INFECTION
     Dosage: UNK; PO
     Route: 048
     Dates: start: 20100513, end: 20100713
  3. AMOXICILLIN [Suspect]
     Dates: start: 20100610, end: 20100615
  4. CLOTRIMAZOLE [Suspect]
     Dates: start: 20050518, end: 20100713

REACTIONS (22)
  - BACTERIAL SEPSIS [None]
  - BLOOD CREATININE INCREASED [None]
  - BLOOD PH DECREASED [None]
  - BLOOD POTASSIUM INCREASED [None]
  - BLOOD SODIUM DECREASED [None]
  - CHEILITIS [None]
  - COLITIS [None]
  - DEHYDRATION [None]
  - HAEMOGLOBIN DECREASED [None]
  - HEPATIC FAILURE [None]
  - HEPATITIS B [None]
  - HEPATOMEGALY [None]
  - HYPERSENSITIVITY [None]
  - LEUKOCYTOSIS [None]
  - NEPHROPATHY [None]
  - NEUTROPHIL TOXIC GRANULATION PRESENT [None]
  - NEUTROPHILIA [None]
  - ORAL CANDIDIASIS [None]
  - RENAL DISORDER [None]
  - THROMBOCYTOPENIA [None]
  - UPPER RESPIRATORY TRACT INFECTION [None]
  - URINARY TRACT INFECTION [None]
